FAERS Safety Report 17799286 (Version 2)
Quarter: 2020Q2

REPORT INFORMATION
  Report Type: Spontaneous
  Country: RU (occurrence: RU)
  Receive Date: 20200518
  Receipt Date: 20200527
  Transmission Date: 20200714
  Serious: Yes (Other)
  Sender: FDA-Public Use
  Company Number: RU-UCBSA-2020020098

PATIENT
  Age: 18 Year
  Sex: Female

DRUGS (11)
  1. LEVOMEPROMAZINE [Concomitant]
     Active Substance: LEVOMEPROMAZINE
     Indication: AGGRESSION
  2. PREDNISOLONE. [Suspect]
     Active Substance: PREDNISOLONE
     Indication: PRODUCT USED FOR UNKNOWN INDICATION
     Dosage: UNK
  3. LEVETIRACETAM. [Suspect]
     Active Substance: LEVETIRACETAM
     Indication: PRODUCT USED FOR UNKNOWN INDICATION
     Dosage: 3000 MG MSD/3000 MG DAILY
     Dates: end: 202005
  4. VALPROATE [Concomitant]
     Active Substance: VALPROIC ACID
     Dosage: 1000MG
  5. LACOSAMIDE. [Suspect]
     Active Substance: LACOSAMIDE
     Indication: PRODUCT USED FOR UNKNOWN INDICATION
     Dosage: 100 MG IN THE MORNING + 150 MG IN THE EVENING, 2X/DAY (BID)
     Dates: start: 20200315
  6. VALPROATE [Concomitant]
     Active Substance: VALPROIC ACID
     Indication: PRODUCT USED FOR UNKNOWN INDICATION
     Dosage: VPA 1500 MG MSD
  7. TOPIRAMATE. [Concomitant]
     Active Substance: TOPIRAMATE
     Indication: PRODUCT USED FOR UNKNOWN INDICATION
     Dosage: UNK
  8. SYNACTHEN [DOXYCYCLINE HYDROCHLORIDE] [Suspect]
     Active Substance: DOXYCYCLINE HYDROCHLORIDE
     Indication: PRODUCT USED FOR UNKNOWN INDICATION
     Dosage: UNK
  9. BRIVIACT [Suspect]
     Active Substance: BRIVARACETAM
     Indication: PRODUCT USED FOR UNKNOWN INDICATION
     Dosage: 200 MG MSD/200 MG DAILY
     Dates: start: 202002
  10. VALPROIC ACID. [Concomitant]
     Active Substance: VALPROIC ACID
     Indication: PRODUCT USED FOR UNKNOWN INDICATION
     Dosage: 1000 MG DAILY
  11. CLONAZEPAM. [Concomitant]
     Active Substance: CLONAZEPAM
     Indication: PRODUCT USED FOR UNKNOWN INDICATION
     Dosage: 2 MILLIGRAM, UNK

REACTIONS (16)
  - Circadian rhythm sleep disorder [Recovered/Resolved]
  - Psychotic disorder [Unknown]
  - Dysphoria [Recovering/Resolving]
  - Disorientation [Unknown]
  - Disinhibition [Recovering/Resolving]
  - Aggression [Recovering/Resolving]
  - Encephalopathy [Unknown]
  - Alopecia [Not Recovered/Not Resolved]
  - Fatigue [Unknown]
  - Negativism [Unknown]
  - Menstrual disorder [Not Recovered/Not Resolved]
  - Off label use [Unknown]
  - Dysphonia [Recovering/Resolving]
  - Affective disorder [Unknown]
  - Therapeutic response unexpected [Unknown]
  - Weight increased [Not Recovered/Not Resolved]

NARRATIVE: CASE EVENT DATE: 202005
